FAERS Safety Report 8943399 (Version 1)
Quarter: 2012Q4

REPORT INFORMATION
  Report Type: 
  Country: US (occurrence: US)
  Receive Date: 20121204
  Receipt Date: 20121204
  Transmission Date: 20130627
  Serious: Yes (Hospitalization, Congenital Anomaly, Other)
  Sender: FDA-Public Use
  Company Number: US-PFIZER INC-2012300506

PATIENT
  Sex: Female
  Weight: 3 kg

DRUGS (6)
  1. ZOLOFT [Suspect]
     Indication: ANXIETY
     Dosage: 50 mg, UNK
     Route: 064
     Dates: start: 20051123, end: 20060328
  2. CRINONE [Concomitant]
     Dosage: UNK
     Route: 064
     Dates: start: 20060308
  3. PRENATAL PLUS [Concomitant]
     Dosage: UNK
     Route: 064
     Dates: start: 20060316
  4. ACIPHEX [Concomitant]
     Dosage: 20 mg, UNK
     Route: 064
     Dates: start: 20060328
  5. NUTRINATE [Concomitant]
     Dosage: UNK
     Route: 064
     Dates: start: 20060815
  6. BETAMETHASONE [Concomitant]
     Dosage: UNK
     Route: 064
     Dates: start: 20061030

REACTIONS (9)
  - Maternal exposure timing unspecified [Unknown]
  - Ventricular septal defect [Recovered/Resolved]
  - Atrial septal defect [Unknown]
  - Tricuspid valve incompetence [Unknown]
  - Congenital pulmonary hypertension [Unknown]
  - Congenital heart valve disorder [Unknown]
  - Mitral valve incompetence [Unknown]
  - Sepsis neonatal [Unknown]
  - Neonatal tachypnoea [Unknown]
